FAERS Safety Report 6788650-9 (Version None)
Quarter: 2010Q2

REPORT INFORMATION
  Report Type: 
  Country: None (occurrence: None)
  Receive Date: 20100623
  Receipt Date: 20080428
  Transmission Date: 20101027
  Serious: No
  Sender: FDA-Public Use
  Company Number: US-PFIZER INC-2008037531

PATIENT
  Sex: Female
  Weight: 50 kg

DRUGS (2)
  1. DEPO-PROVERA SUSPENSION/INJ [Suspect]
     Indication: MENSTRUAL DISCOMFORT
     Dates: start: 20040101
  2. DEPO-PROVERA SUSPENSION/INJ [Suspect]
     Indication: OFF LABEL USE

REACTIONS (7)
  - DECREASED INTEREST [None]
  - DIZZINESS [None]
  - MOOD SWINGS [None]
  - NAUSEA [None]
  - NERVOUSNESS [None]
  - PANIC ATTACK [None]
  - WEIGHT INCREASED [None]
